FAERS Safety Report 14393153 (Version 1)
Quarter: 2018Q1

REPORT INFORMATION
  Report Type: Spontaneous
  Country: US (occurrence: US)
  Receive Date: 20180112
  Receipt Date: 20180112
  Transmission Date: 20180509
  Serious: Yes (Hospitalization)
  Sender: FDA-Public Use
  Company Number: None

PATIENT
  Age: 47 Year
  Sex: Male
  Weight: 96.8 kg

DRUGS (1)
  1. GLIPIZIDE. [Suspect]
     Active Substance: GLIPIZIDE
     Indication: DIABETES MELLITUS
     Route: 048
     Dates: start: 20170207, end: 20171031

REACTIONS (5)
  - Dialysis [None]
  - Hypoglycaemia [None]
  - Head injury [None]
  - Fall [None]
  - Skin abrasion [None]

NARRATIVE: CASE EVENT DATE: 20171031
